FAERS Safety Report 4884935-1 (Version None)
Quarter: 2006Q1

REPORT INFORMATION
  Report Type: 
  Country: None (occurrence: None)
  Receive Date: 20060119
  Receipt Date: 20060112
  Transmission Date: 20060701
  Serious: Yes (Hospitalization)
  Sender: FDA-Public Use
  Company Number: 2006AP00181

PATIENT
  Age: 840 Month
  Sex: Female

DRUGS (4)
  1. TENORMIN [Suspect]
     Indication: ILL-DEFINED DISORDER
     Dosage: 30 YEARS
     Route: 048
  2. MAREVAN [Concomitant]
  3. ANTI ASTHMATICS [Concomitant]
  4. ALLERGY MEDICATION [Concomitant]

REACTIONS (4)
  - ABDOMINAL DISTENSION [None]
  - DYSPNOEA [None]
  - HAEMATEMESIS [None]
  - OEDEMA PERIPHERAL [None]
